FAERS Safety Report 5805064-6 (Version None)
Quarter: 2008Q3

REPORT INFORMATION
  Report Type: 
  Country: None (occurrence: None)
  Receive Date: 20080707
  Receipt Date: 20070911
  Transmission Date: 20090109
  Serious: Yes (Hospitalization)
  Sender: FDA-Public Use
  Company Number: 516526

PATIENT
  Age: 71 Year
  Sex: Male

DRUGS (11)
  1. CELLCEPT [Suspect]
     Indication: NEPHRITIS INTERSTITIAL
     Dates: start: 20070809, end: 20070811
  2. PREDNISONE [Suspect]
     Indication: NEPHRITIS INTERSTITIAL
     Dosage: 40 MG 2 PER DAY ORAL
     Route: 048
  3. ASPIRIN [Concomitant]
  4. EPOGEN [Concomitant]
  5. SODIUM BICARBONATE IN PLASTIC CONTAINER [Concomitant]
  6. LASIX [Concomitant]
  7. TOPRAL (SULTOPRIDE) [Concomitant]
  8. POTASSIUM (POTASSIUM NOS) [Concomitant]
  9. AMLODIPINE (AMLODIPINE BESYLATE) [Concomitant]
  10. PROTONIX [Concomitant]
  11. TUMS (CALCIUM CARBONATE) [Concomitant]

REACTIONS (5)
  - DIABETES MELLITUS [None]
  - GASTROENTERITIS [None]
  - GASTROENTERITIS SALMONELLA [None]
  - PERONEAL NERVE PALSY [None]
  - WEIGHT DECREASED [None]
